FAERS Safety Report 16895534 (Version 1)
Quarter: 2019Q4

REPORT INFORMATION
  Report Type: Spontaneous
  Country: CZ (occurrence: CZ)
  Receive Date: 20191008
  Receipt Date: 20191008
  Transmission Date: 20200122
  Serious: No
  Sender: FDA-Public Use
  Company Number: CZ-B.BRAUN MEDICAL INC.-2075404

PATIENT
  Age: 64 Year
  Sex: Female
  Weight: 73 kg

DRUGS (1)
  1. POTASSIUM CHLORIDE IN 0.9% SODIUM CHLORIDE INJECTIONS 0264-7865-00 (ND [Suspect]
     Active Substance: POTASSIUM CHLORIDE\SODIUM CHLORIDE
     Indication: PREOPERATIVE CARE
     Route: 042
     Dates: start: 20190919, end: 20190919

REACTIONS (1)
  - Pain in extremity [None]
